FAERS Safety Report 9791234 (Version 1)
Quarter: 2014Q1

REPORT INFORMATION
  Report Type: Report from Study
  Country: US (occurrence: US)
  Receive Date: 20140101
  Receipt Date: 20140101
  Transmission Date: 20141002
  Serious: Yes (Other)
  Sender: FDA-Public Use
  Company Number: US-ROCHE-1326326

PATIENT
  Sex: Female
  Weight: 111.68 kg

DRUGS (1)
  1. XELODA [Suspect]
     Indication: CHOLANGIOCARCINOMA
     Route: 048
     Dates: start: 20130121, end: 20131125

REACTIONS (1)
  - Malignant neoplasm progression [Unknown]
